FAERS Safety Report 19483855 (Version 1)
Quarter: 2021Q3

REPORT INFORMATION
  Report Type: Report from Study
  Country: CN (occurrence: CN)
  Receive Date: 20210701
  Receipt Date: 20210701
  Transmission Date: 20211014
  Serious: Yes (Death, Hospitalization, Other)
  Sender: FDA-Public Use
  Company Number: NVSC2020CN275014

PATIENT
  Age: 41 Year
  Sex: Male
  Weight: 68 kg

DRUGS (18)
  1. EDARAVONE [Concomitant]
     Active Substance: EDARAVONE
     Indication: PRODUCT USED FOR UNKNOWN INDICATION
     Dosage: 30 MG, BID
     Route: 065
     Dates: start: 20200910, end: 20200912
  2. HUMAN ALBUMIN [Concomitant]
     Active Substance: ALBUMIN HUMAN
     Indication: PRODUCT USED FOR UNKNOWN INDICATION
     Dosage: 10 MG, BID
     Route: 065
     Dates: start: 20200911, end: 20200912
  3. CITICOLINE SODIUM [Concomitant]
     Active Substance: CITICOLINE SODIUM
     Indication: NUTRITIONAL SUPPLEMENTATION
     Dosage: 0.5 G, QD
     Route: 065
     Dates: start: 20200909, end: 20200910
  4. VITAMIIN C [Concomitant]
     Active Substance: ASCORBIC ACID
     Indication: PRODUCT USED FOR UNKNOWN INDICATION
     Dosage: 2 G, QD
     Route: 065
     Dates: start: 20200909, end: 20200910
  5. LANSOPRAZOLE. [Concomitant]
     Active Substance: LANSOPRAZOLE
     Indication: PROPHYLAXIS
     Dosage: 30 MG, BID
     Route: 065
     Dates: start: 20200910, end: 20200912
  6. AMBROXOL HYDROCHLORIDE [Concomitant]
     Active Substance: AMBROXOL HYDROCHLORIDE
     Indication: PRODUCTIVE COUGH
     Dosage: 30 MG, TID
     Route: 065
     Dates: start: 20200910, end: 20200912
  7. ENTRESTO [Suspect]
     Active Substance: SACUBITRIL\VALSARTAN
     Dosage: 50 MG, BID
     Route: 048
     Dates: start: 20200413, end: 2020
  8. CEFOTIAM HYDROCHLORIDE [Concomitant]
     Active Substance: CEFOTIAM HYDROCHLORIDE
     Indication: ANTIINFLAMMATORY THERAPY
     Dosage: 1.5 G, Q12H
     Route: 065
     Dates: start: 20200909, end: 20200910
  9. ASPIRIN. [Concomitant]
     Active Substance: ASPIRIN
     Indication: THROMBOSIS PROPHYLAXIS
     Dosage: 100 MG, QD
     Route: 065
     Dates: start: 20200911, end: 20200912
  10. IBUPROFEN. [Concomitant]
     Active Substance: IBUPROFEN
     Indication: ANALGESIC THERAPY
     Dosage: 300 MG, TID
     Route: 065
     Dates: start: 20200911, end: 20200912
  11. ENTRESTO [Suspect]
     Active Substance: SACUBITRIL\VALSARTAN
     Indication: CARDIAC FAILURE
     Dosage: 50 MG, BID
     Route: 048
     Dates: start: 20200409, end: 20200410
  12. HAEMOCOAGULASE [Concomitant]
     Indication: ANTICOAGULANT THERAPY
     Dosage: 1 IU, BID
     Route: 065
     Dates: start: 20200909, end: 20200910
  13. POLYENE PHOSPHATIDYLCHOLINE [Concomitant]
     Active Substance: PHOSPHOLIPID
     Indication: PROPHYLAXIS
     Dosage: 697.5 MG, QD
     Route: 065
  14. SODIUM RABEPRAZOLE [Concomitant]
     Active Substance: RABEPRAZOLE SODIUM
     Indication: PROPHYLAXIS
     Dosage: 20 MG, BID
     Route: 065
     Dates: start: 20200909, end: 20200910
  15. CEFTAZIDIME. [Concomitant]
     Active Substance: CEFTAZIDIME
     Indication: ANTIINFLAMMATORY THERAPY
     Dosage: 2 G, Q12H
     Route: 065
     Dates: start: 20200910, end: 20200912
  16. ENTRESTO [Suspect]
     Active Substance: SACUBITRIL\VALSARTAN
     Dosage: 25 MG, BID
     Route: 048
     Dates: start: 20200410, end: 20200413
  17. SODIUM ACETATE. [Concomitant]
     Active Substance: SODIUM ACETATE
     Indication: FLUID REPLACEMENT
     Dosage: 500 ML, QD
     Route: 065
     Dates: start: 20200909, end: 20200910
  18. POTASSIUM CHLORIDE. [Concomitant]
     Active Substance: POTASSIUM CHLORIDE
     Indication: MINERAL SUPPLEMENTATION
     Dosage: 1.5 G, QD
     Route: 065
     Dates: start: 20200909, end: 20200912

REACTIONS (27)
  - Pericardial effusion [Unknown]
  - Hydrocephalus [Unknown]
  - Renal failure [Unknown]
  - Hyperlipidaemia [Unknown]
  - Hypokalaemia [Unknown]
  - Contusion [Unknown]
  - Pulmonary fibrosis [Unknown]
  - Cardiac failure [Fatal]
  - Subarachnoid haemorrhage [Unknown]
  - Altered state of consciousness [Unknown]
  - Headache [Unknown]
  - Pleural calcification [Unknown]
  - Syncope [Unknown]
  - Congestive cardiomyopathy [Unknown]
  - Pneumonia [Unknown]
  - Anaemia [Unknown]
  - Hypoproteinaemia [Unknown]
  - Dizziness [Unknown]
  - Gout [Unknown]
  - Intracranial aneurysm [Unknown]
  - Cardiomegaly [Unknown]
  - Pleural thickening [Unknown]
  - Hypertension [Unknown]
  - Condition aggravated [Unknown]
  - Gouty tophus [Unknown]
  - Skin ulcer [Unknown]
  - Aortic arteriosclerosis [Unknown]

NARRATIVE: CASE EVENT DATE: 20200409
